FAERS Safety Report 8074578-3 (Version None)
Quarter: 2012Q1

REPORT INFORMATION
  Report Type: 
  Country: None (occurrence: None)
  Receive Date: 20120126
  Receipt Date: 20120123
  Transmission Date: 20120608
  Serious: Yes (Other)
  Sender: FDA-Public Use
  Company Number: DE-PFIZER INC-2012017702

PATIENT
  Sex: Female

DRUGS (2)
  1. PARACETAMOL [Concomitant]
     Indication: PAIN
     Route: 048
  2. CLINDAMYCIN HCL [Suspect]
     Indication: ARTHRITIS
     Dosage: 600 MG, 3X/DAY
     Route: 048

REACTIONS (3)
  - HEPATITIS [None]
  - JAUNDICE [None]
  - CHOLESTASIS [None]
